FAERS Safety Report 13582576 (Version 1)
Quarter: 2017Q2

REPORT INFORMATION
  Report Type: Spontaneous
  Country: US (occurrence: US)
  Receive Date: 20170525
  Receipt Date: 20170525
  Transmission Date: 20170830
  Serious: Yes (Death, Hospitalization)
  Sender: FDA-Public Use
  Company Number: US-SA-2017SA093653

PATIENT
  Age: 75 Year
  Sex: Male

DRUGS (2)
  1. ALIROCUMAB PREFILLED PEN [Concomitant]
     Active Substance: ALIROCUMAB
  2. PRALUENT [Suspect]
     Active Substance: ALIROCUMAB
     Indication: BLOOD CHOLESTEROL
     Route: 058
     Dates: start: 2016, end: 201704

REACTIONS (10)
  - Drug ineffective [Unknown]
  - Pneumonia [Fatal]
  - Hip fracture [Unknown]
  - Thermal burn [Unknown]
  - Cough [Fatal]
  - Wound [Unknown]
  - Bacterial sepsis [Fatal]
  - Pyrexia [Fatal]
  - Dyspnoea [Fatal]
  - Fall [Unknown]

NARRATIVE: CASE EVENT DATE: 2017
